FAERS Safety Report 15805875 (Version 1)
Quarter: 2019Q1

REPORT INFORMATION
  Report Type: Spontaneous
  Country: US (occurrence: US)
  Receive Date: 20190110
  Receipt Date: 20190110
  Transmission Date: 20190417
  Serious: Yes (Other)
  Sender: FDA-Public Use
  Company Number: US-DRREDDYS-USA/USA/18/0102944

PATIENT
  Age: 36 Year
  Sex: Male

DRUGS (1)
  1. ZAFIRLUKAST TABLETS 10 MG  AND  20 MG [Suspect]
     Active Substance: ZAFIRLUKAST
     Indication: ASTHMA
     Route: 065

REACTIONS (2)
  - Drug hypersensitivity [Recovered/Resolved]
  - Eosinophilic granulomatosis with polyangiitis [Recovered/Resolved]
